FAERS Safety Report 5140033-3 (Version None)
Quarter: 2006Q4

REPORT INFORMATION
  Report Type: 
  Country: None (occurrence: None)
  Receive Date: 20061024
  Receipt Date: 20061004
  Transmission Date: 20070319
  Serious: Yes (Other)
  Sender: FDA-Public Use
  Company Number: US200601000964

PATIENT
  Age: 52 Year
  Sex: Female
  Weight: 82.5 kg

DRUGS (11)
  1. ZYPREXA [Suspect]
     Indication: SCHIZOPHRENIA
     Dosage: SEE IMAGE
  2. ATENOLOL [Concomitant]
  3. CLONAZEPAM [Concomitant]
  4. DOCUSATE SODIUM [Concomitant]
  5. HALOPERIDOL [Concomitant]
  6. LEVOTHYROXINE SODIUM [Concomitant]
  7. LITHIUM CARBONATE [Concomitant]
  8. MENEST [Concomitant]
  9. TRAZODONE HCL [Concomitant]
  10. TRIHEXYPHENIDYL HCL [Concomitant]
  11. ZOLOFT [Concomitant]

REACTIONS (2)
  - DIABETES MELLITUS NON-INSULIN-DEPENDENT [None]
  - RECTAL HAEMORRHAGE [None]
